FAERS Safety Report 6267273-4 (Version None)
Quarter: 2009Q3

REPORT INFORMATION
  Report Type: 
  Country: None (occurrence: None)
  Receive Date: 20090714
  Receipt Date: 20090702
  Transmission Date: 20100115
  Serious: Yes (Other)
  Sender: FDA-Public Use
  Company Number: US-PFIZER INC-2009236724

PATIENT
  Sex: Female
  Weight: 40.816 kg

DRUGS (2)
  1. CYTOTEC [Suspect]
     Indication: DYSPEPSIA
     Dosage: 100 MG, 4X/DAY
     Route: 048
     Dates: start: 20060201, end: 20060801
  2. CYTOTEC [Suspect]
     Indication: GASTROOESOPHAGEAL REFLUX DISEASE

REACTIONS (3)
  - BREAST CANCER [None]
  - BREAST CANCER FEMALE [None]
  - NAUSEA [None]
